FAERS Safety Report 6076781-0 (Version None)
Quarter: 2009Q1

REPORT INFORMATION
  Report Type: 
  Country: None (occurrence: None)
  Receive Date: 20090211
  Receipt Date: 20090202
  Transmission Date: 20090719
  Serious: Yes (Other)
  Sender: FDA-Public Use
  Company Number: 09-000174

PATIENT
  Sex: Male

DRUGS (1)
  1. TACLONEX [Suspect]
     Indication: PSORIASIS
     Dosage: 100 GM, TOPICAL, TOPICAL
     Route: 061

REACTIONS (1)
  - CARDIAC FAILURE CONGESTIVE [None]
